FAERS Safety Report 8581404-2 (Version None)
Quarter: 2012Q3

REPORT INFORMATION
  Report Type: 
  Country: None (occurrence: None)
  Receive Date: 20120727
  Receipt Date: 20120711
  Transmission Date: 20120928
  Serious: Yes (Other)
  Sender: FDA-Public Use
  Company Number: TPA2012A02775

PATIENT
  Age: 65 Year
  Sex: Male
  Weight: 113.3993 kg

DRUGS (4)
  1. ACTOS [Suspect]
     Indication: TYPE 2 DIABETES MELLITUS
     Dosage: 30 MG
     Dates: start: 20000301, end: 20020423
  2. METFORMIN HYDROCHLORIDE [Concomitant]
  3. GLYBURIDE [Suspect]
  4. METFORMIN HYDROCHLORIDE [Concomitant]

REACTIONS (2)
  - BLADDER CANCER [None]
  - PROSTATE CANCER [None]
